FAERS Safety Report 6673263-X (Version None)
Quarter: 2010Q2

REPORT INFORMATION
  Report Type: 
  Country: None (occurrence: None)
  Receive Date: 20100408
  Receipt Date: 20100326
  Transmission Date: 20101027
  Serious: Yes (Life-Threatening, Hospitalization, Other)
  Sender: FDA-Public Use
  Company Number: GB-WATSON-2010-04431

PATIENT

DRUGS (7)
  1. FENTANYL CITRATE [Suspect]
     Indication: GENERAL ANAESTHESIA
     Dosage: UNK
     Route: 065
     Dates: start: 20070101, end: 20070101
  2. VECURONIUM BROMIDE (WATSON LABORATORIES) [Suspect]
     Indication: GENERAL ANAESTHESIA
     Dosage: UNK
     Route: 065
     Dates: start: 20070101, end: 20070101
  3. ETOMIDATE [Suspect]
     Indication: GENERAL ANAESTHESIA
     Dosage: UNK
     Route: 065
     Dates: start: 20070101, end: 20070101
  4. SILDENAFIL [Suspect]
     Indication: PULMONARY HYPERTENSION
     Dosage: UNK
     Route: 048
  5. SUXAMETHONIUM [Suspect]
     Indication: GENERAL ANAESTHESIA
     Dosage: UNK, EXPOSURE IN 3RD TRIMESTER
     Route: 065
     Dates: start: 20070101, end: 20070101
  6. PERIPHERAL VASODILATORS (PULMONARY VASODILATORS) [Suspect]
     Indication: PULMONARY HYPERTENSION
     Dosage: UNK
     Route: 055
  7. PERIPHERAL VASODILATORS (PULMONARY VASODILATORS) [Suspect]
     Dosage: UNK
     Route: 048

REACTIONS (4)
  - BRADYCARDIA [None]
  - CARDIOVASCULAR DISORDER [None]
  - DRUG EXPOSURE DURING PREGNANCY [None]
  - LIVE BIRTH [None]
